FAERS Safety Report 19582028 (Version 1)
Quarter: 2021Q3

REPORT INFORMATION
  Report Type: Report from Study
  Country: IN (occurrence: IN)
  Receive Date: 20210720
  Receipt Date: 20210720
  Transmission Date: 20211014
  Serious: Yes (Death)
  Sender: FDA-Public Use
  Company Number: NVSC2020IN261715

PATIENT
  Age: 70 Year
  Sex: Male

DRUGS (3)
  1. VYMADA [Suspect]
     Active Substance: SACUBITRIL\VALSARTAN
     Dosage: 0.5 DF, BID (50MG)
     Route: 048
     Dates: start: 20200608
  2. VYMADA [Suspect]
     Active Substance: SACUBITRIL\VALSARTAN
     Indication: CARDIAC FAILURE CHRONIC
     Dosage: 0.5 DF, BID (50MG)
     Route: 048
     Dates: start: 20200526
  3. VYMADA [Suspect]
     Active Substance: SACUBITRIL\VALSARTAN
     Indication: CARDIAC FAILURE CONGESTIVE
     Dosage: 0.5 DF, BID (50MG)
     Route: 048
     Dates: start: 20200606

REACTIONS (7)
  - Underdose [Unknown]
  - Inappropriate schedule of product administration [Unknown]
  - Myocardial infarction [Fatal]
  - Dysuria [Not Recovered/Not Resolved]
  - Dizziness [Recovering/Resolving]
  - Wrong technique in product usage process [Unknown]
  - Chest pain [Fatal]

NARRATIVE: CASE EVENT DATE: 20200905
